FAERS Safety Report 10501894 (Version 4)
Quarter: 2014Q4

REPORT INFORMATION
  Report Type: Spontaneous
  Country: US (occurrence: US)
  Receive Date: 20141007
  Receipt Date: 20141124
  Transmission Date: 20150528
  Serious: Yes (Hospitalization, Other)
  Sender: FDA-Public Use
  Company Number: US-ASTELLAS-2014US013809

PATIENT
  Age: 72 Year
  Sex: Male

DRUGS (4)
  1. CRESTOR [Concomitant]
     Active Substance: ROSUVASTATIN CALCIUM
     Indication: BLOOD CHOLESTEROL INCREASED
     Dosage: UNK UNK, UNKNOWN FREQ.
     Route: 065
  2. TAMSULOSIN [Suspect]
     Active Substance: TAMSULOSIN
     Indication: PRODUCT USED FOR UNKNOWN INDICATION
     Dosage: 0.4 MG, TWICE DAILY
     Route: 065
  3. MYRBETRIQ [Suspect]
     Active Substance: MIRABEGRON
     Indication: POLLAKIURIA
     Route: 048
     Dates: start: 201403
  4. TOLTERODINE TARTRATE. [Suspect]
     Active Substance: TOLTERODINE TARTRATE
     Indication: PRODUCT USED FOR UNKNOWN INDICATION
     Route: 065

REACTIONS (9)
  - Blood sodium decreased [Not Recovered/Not Resolved]
  - Urinary retention [Not Recovered/Not Resolved]
  - Suicidal ideation [Not Recovered/Not Resolved]
  - Urinary incontinence [Unknown]
  - Dysuria [Not Recovered/Not Resolved]
  - Depression [Not Recovered/Not Resolved]
  - Mental impairment [Unknown]
  - Polyuria [Unknown]
  - Urinary tract infection [Recovered/Resolved]

NARRATIVE: CASE EVENT DATE: 201409
